FAERS Safety Report 4689592-5 (Version None)
Quarter: 2005Q2

REPORT INFORMATION
  Report Type: 
  Country: None (occurrence: None)
  Receive Date: 20050614
  Receipt Date: 20050404
  Transmission Date: 20051028
  Serious: Yes (Hospitalization)
  Sender: FDA-Public Use
  Company Number: JP-SP-2005-00698

PATIENT
  Age: 79 Year
  Sex: Male

DRUGS (3)
  1. IMMUCYST [Suspect]
     Indication: BLADDER CANCER
     Route: 043
     Dates: start: 20041006, end: 20050106
  2. CEFDINIR [Concomitant]
     Dosage: 300 MG/DAY
     Route: 048
     Dates: start: 20041012, end: 20041019
  3. LOXOPROFEN SODIUM [Concomitant]
     Dosage: 120 MG/DAY
     Route: 048
     Dates: start: 20041012, end: 20041015

REACTIONS (5)
  - DYSURIA [None]
  - EPIDIDYMITIS TUBERCULOUS [None]
  - POLLAKIURIA [None]
  - SCROTAL ABSCESS [None]
  - SCROTAL PAIN [None]
